FAERS Safety Report 19800419 (Version 1)
Quarter: 2021Q3

REPORT INFORMATION
  Report Type: Report from Study
  Country: US (occurrence: US)
  Receive Date: 20210907
  Receipt Date: 20210907
  Transmission Date: 20211014
  Serious: No
  Sender: FDA-Public Use
  Company Number: US-SUNOVION-2021SUN003313

PATIENT
  Age: 69 Year
  Sex: Male

DRUGS (1)
  1. KYNMOBI [Suspect]
     Active Substance: APOMORPHINE HYDROCHLORIDE
     Indication: PARKINSON^S DISEASE
     Dosage: 10 MG
     Route: 060
     Dates: start: 20210823

REACTIONS (7)
  - Nausea [Recovering/Resolving]
  - Pallor [Unknown]
  - Fatigue [Unknown]
  - Retching [Recovering/Resolving]
  - Hyperhidrosis [Recovering/Resolving]
  - Rhinorrhoea [Recovering/Resolving]
  - Hypotension [Unknown]

NARRATIVE: CASE EVENT DATE: 20210823
